FAERS Safety Report 13519465 (Version 1)
Quarter: 2017Q2

REPORT INFORMATION
  Report Type: Not Available
  Country: None (occurrence: US)
  Receive Date: 20170505
  Receipt Date: 20170505
  Transmission Date: 20170830
  Serious: No
  Sender: FDA-Public Use
  Company Number: US-AKORN-55501

PATIENT
  Sex: Female

DRUGS (1)
  1. APRACLONIDINE OPHTHALMIC [Suspect]
     Active Substance: APRACLONIDINE HYDROCHLORIDE

REACTIONS (2)
  - Accidental exposure to product [Recovered/Resolved]
  - Drug administration error [Recovered/Resolved]
